FAERS Safety Report 6822088-0 (Version None)
Quarter: 2010Q3

REPORT INFORMATION
  Report Type: 
  Country: None (occurrence: None)
  Receive Date: 20100708
  Receipt Date: 20100628
  Transmission Date: 20110219
  Serious: Yes (Other)
  Sender: FDA-Public Use
  Company Number: AU-JNJFOC-20100607650

PATIENT
  Age: 27 Year
  Sex: Female

DRUGS (2)
  1. RISPERIDONE [Suspect]
     Indication: SCHIZOPHRENIA
     Route: 065
  2. CITALOPRAM HYDROBROMIDE [Suspect]
     Indication: SCHIZOPHRENIA
     Route: 065

REACTIONS (4)
  - BRADYKINESIA [None]
  - CATATONIA [None]
  - COGWHEEL RIGIDITY [None]
  - PARKINSONIAN GAIT [None]
